FAERS Safety Report 5733697-4 (Version None)
Quarter: 2008Q2

REPORT INFORMATION
  Report Type: 
  Country: None (occurrence: None)
  Receive Date: 20080509
  Receipt Date: 20080415
  Transmission Date: 20081010
  Serious: No
  Sender: FDA-Public Use
  Company Number: A0718933A

PATIENT
  Age: 35 Year
  Sex: Female

DRUGS (2)
  1. ALTABAX [Suspect]
     Indication: OPEN WOUND
     Dosage: 1APP PER DAY
     Route: 061
     Dates: start: 20080310, end: 20080331
  2. MUPIROCIN [Suspect]
     Indication: OPEN WOUND
     Route: 061
     Dates: start: 20080227, end: 20080307

REACTIONS (3)
  - DERMATITIS CONTACT [None]
  - PAIN [None]
  - WOUND COMPLICATION [None]
